FAERS Safety Report 16722751 (Version 2)
Quarter: 2019Q3

REPORT INFORMATION
  Report Type: Spontaneous
  Country: US (occurrence: US)
  Receive Date: 20190821
  Receipt Date: 20190822
  Transmission Date: 20191005
  Serious: No
  Sender: FDA-Public Use
  Company Number: US-JNJFOC-20190743587

PATIENT
  Sex: Female

DRUGS (3)
  1. MENS ROGAINE EXTRA STRENGTH [Suspect]
     Active Substance: MINOXIDIL
     Indication: ALOPECIA
     Dosage: HALF CAPFULL
     Route: 061
  2. MENS ROGAINE EXTRA STRENGTH [Suspect]
     Active Substance: MINOXIDIL
     Dosage: HALF CAPFULL
     Route: 061
  3. MENS ROGAINE EXTRA STRENGTH [Suspect]
     Active Substance: MINOXIDIL
     Dosage: HALF CAPFULL
     Route: 061

REACTIONS (6)
  - Off label use [Unknown]
  - Overdose [Not Recovered/Not Resolved]
  - Alopecia [Not Recovered/Not Resolved]
  - Poor quality product administered [Not Recovered/Not Resolved]
  - Product formulation issue [Unknown]
  - Product use issue [Not Recovered/Not Resolved]
